FAERS Safety Report 22117070 (Version 1)
Quarter: 2023Q1

REPORT INFORMATION
  Report Type: Report from Study
  Country: FR (occurrence: FR)
  Receive Date: 20230320
  Receipt Date: 20230320
  Transmission Date: 20230418
  Serious: Yes (Hospitalization)
  Sender: FDA-Public Use
  Company Number: None

PATIENT
  Age: 49 Year
  Sex: Female
  Weight: 45 kg

DRUGS (9)
  1. LETROZOLE [Suspect]
     Active Substance: LETROZOLE
     Indication: Invasive ductal breast carcinoma
     Dosage: 2.5 MILLIGRAM, QD,FILM-COATED TABLET
     Route: 048
     Dates: start: 20181127, end: 20190521
  2. EXEMESTANE [Suspect]
     Active Substance: EXEMESTANE
     Indication: Invasive ductal breast carcinoma
     Dosage: 25 MILLIGRAM, QD,FILM-COATED TABLET
     Route: 048
     Dates: start: 20190523, end: 20201124
  3. EXEMESTANE [Suspect]
     Active Substance: EXEMESTANE
     Dosage: UNK,(POST-DISCONTINUATION PERIOD)
     Route: 065
     Dates: start: 20201125
  4. EXEMESTANE [Suspect]
     Active Substance: EXEMESTANE
     Dosage: UNK,(LAST DOSE IN POST-DISCONTINUATION PERIOD)
     Route: 065
     Dates: end: 20221205
  5. EXEMESTANE [Suspect]
     Active Substance: EXEMESTANE
     Dosage: UNK,FILM-COATED TABLET
     Route: 065
     Dates: end: 20230105
  6. TRIPTORELIN [Suspect]
     Active Substance: TRIPTORELIN
     Indication: Invasive ductal breast carcinoma
     Dosage: 3 MILLIGRAM,Q4W (4/W-EVERY 4 WEEK)
     Route: 030
     Dates: start: 20181127, end: 20201124
  7. TRIPTORELIN [Suspect]
     Active Substance: TRIPTORELIN
     Dosage: UNK,(POST-DISCONTINUATION PERIOD)
     Route: 065
     Dates: start: 20201125
  8. TRIPTORELIN [Suspect]
     Active Substance: TRIPTORELIN
     Dosage: UNK,(LAST DOSE IN POST-DISCONTINUATION PERIOD)
     Route: 065
     Dates: end: 202211
  9. TRIPTORELIN [Suspect]
     Active Substance: TRIPTORELIN
     Dosage: UNK
     Route: 065
     Dates: end: 20230105

REACTIONS (1)
  - Anxiety disorder [Recovered/Resolved]

NARRATIVE: CASE EVENT DATE: 20220421
